FAERS Safety Report 11743662 (Version 1)
Quarter: 2015Q4

REPORT INFORMATION
  Report Type: Report from Study
  Country: JP (occurrence: JP)
  Receive Date: 20151116
  Receipt Date: 20151116
  Transmission Date: 20160304
  Serious: Yes (Death, Hospitalization)
  Sender: FDA-Public Use
  Company Number: JP-TEVA-608189ISR

PATIENT
  Age: 65 Year
  Sex: Male
  Weight: 56.5 kg

DRUGS (13)
  1. WARFARIN [Suspect]
     Active Substance: WARFARIN
     Indication: CEREBRAL INFARCTION
     Dosage: 2 MILLIGRAM DAILY;
     Route: 048
     Dates: start: 20120730, end: 20131028
  2. KAYTWO N [Concomitant]
     Active Substance: MENATETRENONE
     Dates: start: 20131028, end: 20131028
  3. TANATRIL ^TANABE^ [Concomitant]
     Dates: start: 20081213, end: 20131108
  4. MAGMITT [Concomitant]
     Active Substance: MAGNESIUM OXIDE
     Dates: start: 20101110, end: 20131124
  5. HEPARIN SODIUM. [Concomitant]
     Active Substance: HEPARIN SODIUM
     Dates: start: 20131028, end: 20131101
  6. LAFUTIDINE [Concomitant]
     Active Substance: LAFUTIDINE
     Dates: start: 20100519, end: 20131108
  7. ADOFEED [Concomitant]
     Active Substance: FLURBIPROFEN
     Dates: start: 20130204, end: 20131205
  8. DEPAKENE [Concomitant]
     Active Substance: VALPROIC ACID
     Dates: start: 20100321, end: 20131205
  9. ARTIST [Concomitant]
     Active Substance: CARVEDILOL
     Dates: start: 20100603, end: 20131108
  10. ANCARON [Concomitant]
     Active Substance: AMIODARONE HYDROCHLORIDE
     Dates: start: 20110720, end: 20131225
  11. EPLERENONE. [Suspect]
     Active Substance: EPLERENONE
     Indication: CARDIAC FAILURE CHRONIC
     Dosage: 25 MG, ALTERNATE DAY
     Route: 048
     Dates: start: 20110415, end: 20110511
  12. WARFARIN [Suspect]
     Active Substance: WARFARIN
     Dosage: 1.5 MILLIGRAM DAILY;
     Route: 048
     Dates: start: 20131030, end: 20131108
  13. LASIX [Concomitant]
     Active Substance: FUROSEMIDE
     Dates: start: 20110608, end: 20131124

REACTIONS (2)
  - Haemorrhagic diathesis [Recovering/Resolving]
  - Cardiac failure [Fatal]

NARRATIVE: CASE EVENT DATE: 20131028
